FAERS Safety Report 4645123-7 (Version None)
Quarter: 2005Q2

REPORT INFORMATION
  Report Type: 
  Country: None (occurrence: None)
  Receive Date: 20050422
  Receipt Date: 20050408
  Transmission Date: 20051028
  Serious: Yes (Other)
  Sender: FDA-Public Use
  Company Number: HQWYE966611APR05

PATIENT
  Age: 57 Year
  Sex: Female

DRUGS (5)
  1. TAZOCIN (PIPERACILLIN/TAZOBACTAM, INJECTION) [Suspect]
     Indication: SEPSIS
     Dosage: 2.5 G 3X PER 1 DAY INTRAVENOUS DRIP
     Route: 041
     Dates: start: 20041209, end: 20041219
  2. CARBENIN (BETAMIPRON/PANIPENEM) [Concomitant]
  3. FUNGIZONE [Concomitant]
  4. VANCOMYCIN [Concomitant]
  5. OMEPRAZOLE [Concomitant]

REACTIONS (8)
  - ALANINE AMINOTRANSFERASE INCREASED [None]
  - ASPARTATE AMINOTRANSFERASE INCREASED [None]
  - BLOOD CREATININE INCREASED [None]
  - BLOOD UREA INCREASED [None]
  - LIVER DISORDER [None]
  - PYREXIA [None]
  - RENAL DISORDER [None]
  - WHITE BLOOD CELL COUNT DECREASED [None]
